FAERS Safety Report 5437968-0 (Version None)
Quarter: 2007Q3

REPORT INFORMATION
  Report Type: 
  Country: None (occurrence: None)
  Receive Date: 20070831
  Receipt Date: 20070819
  Transmission Date: 20080115
  Serious: No
  Sender: FDA-Public Use
  Company Number: A0660626A

PATIENT
  Age: 29 Year
  Sex: Male

DRUGS (2)
  1. ALLI [Suspect]
     Route: 048
     Dates: start: 20070615, end: 20070624
  2. EFFEXOR [Suspect]

REACTIONS (9)
  - DISCOMFORT [None]
  - DIZZINESS [None]
  - DRUG INTERACTION [None]
  - HEADACHE [None]
  - ILL-DEFINED DISORDER [None]
  - INTENTIONAL DRUG MISUSE [None]
  - MOOD SWINGS [None]
  - OVERDOSE [None]
  - PHARMACEUTICAL PRODUCT COMPLAINT [None]
